FAERS Safety Report 6999019-6 (Version None)
Quarter: 2010Q3

REPORT INFORMATION
  Report Type: 
  Country: None (occurrence: None)
  Receive Date: 20100920
  Receipt Date: 20100721
  Transmission Date: 20110219
  Serious: No
  Sender: FDA-Public Use
  Company Number: US-ASTRAZENECA-2010SE20391

PATIENT
  Age: 616 Month
  Sex: Female
  Weight: 76.2 kg

DRUGS (12)
  1. SEROQUEL [Suspect]
     Indication: BIPOLAR DISORDER
     Route: 048
  2. SEROQUEL [Suspect]
     Route: 048
     Dates: start: 20100426
  3. TOPROL-XL [Concomitant]
     Indication: HYPERTENSION
  4. EFFEXOR [Concomitant]
  5. HYDROXIZINE [Concomitant]
     Indication: OBSESSIVE-COMPULSIVE DISORDER
  6. ATIVAN [Concomitant]
  7. WALMART ACID REDUCER [Concomitant]
     Indication: GASTROOESOPHAGEAL REFLUX DISEASE
  8. MULTI-VITAMIN [Concomitant]
  9. FISH OIL [Concomitant]
  10. ASPIRIN [Concomitant]
  11. POWDER FIBER [Concomitant]
  12. ANTIBIOTICS [Concomitant]

REACTIONS (6)
  - EAR CONGESTION [None]
  - EMOTIONAL DISORDER [None]
  - FLASHBACK [None]
  - VERTIGO [None]
  - VOMITING [None]
  - WRONG TECHNIQUE IN DRUG USAGE PROCESS [None]
